FAERS Safety Report 7314468-4 (Version None)
Quarter: 2011Q1

REPORT INFORMATION
  Report Type: 
  Country: None (occurrence: None)
  Receive Date: 20110225
  Receipt Date: 20101007
  Transmission Date: 20110831
  Serious: No
  Sender: FDA-Public Use
  Company Number: US-MYLANLABS-2010S1016440

PATIENT
  Age: 14 Year
  Sex: Female
  Weight: 73.48 kg

DRUGS (5)
  1. PRILOSEC [Concomitant]
     Dates: start: 20100511
  2. TRINESSA [Concomitant]
  3. CLARAVIS [Suspect]
     Indication: ACNE
     Dates: start: 20100518
  4. DARVOCET [Suspect]
     Dates: start: 20100802
  5. AMNESTEEM [Suspect]
     Indication: ACNE
     Dates: end: 20100802

REACTIONS (1)
  - OVERDOSE [None]
